FAERS Safety Report 25757535 (Version 2)
Quarter: 2025Q4

REPORT INFORMATION
  Report Type: Spontaneous
  Country: JP (occurrence: JP)
  Receive Date: 20250903
  Receipt Date: 20251029
  Transmission Date: 20260118
  Serious: Yes (Life-Threatening, Hospitalization, Other)
  Sender: PFIZER
  Company Number: JP-PFIZER INC-PV202500104962

PATIENT
  Age: 80 Year
  Sex: Female
  Weight: 52.9 kg

DRUGS (13)
  1. IBRANCE [Suspect]
     Active Substance: PALBOCICLIB
     Indication: Breast cancer recurrent
     Dosage: 125 MG, CYCLIC
     Route: 048
     Dates: start: 20220520, end: 20250425
  2. FASLODEX [Concomitant]
     Active Substance: FULVESTRANT
     Dosage: UNK
     Route: 042
     Dates: start: 20220520
  3. DENOSUMAB [Concomitant]
     Active Substance: DENOSUMAB
     Dosage: UNK
     Dates: start: 20220520
  4. CALCIUM CARBONATE\CHOLECALCIFEROL\MAGNESIUM CARBONATE [Concomitant]
     Active Substance: CALCIUM CARBONATE\CHOLECALCIFEROL\MAGNESIUM CARBONATE
     Indication: Hypocalcaemia
     Dosage: 2 DF, DAILY
  5. SODIUM FERROUS CITRATE [Concomitant]
     Active Substance: SODIUM FERROUS CITRATE
     Indication: Anaemia
     Dosage: 100 MG, DAILY
  6. METHYLCOBALAMIN [Concomitant]
     Active Substance: METHYLCOBALAMIN
     Indication: Neuropathy peripheral
     Dosage: 1500 UG, DAILY
  7. AMBROXOL HYDROCHLORIDE [Concomitant]
     Active Substance: AMBROXOL HYDROCHLORIDE
     Indication: Asthma
     Dosage: 45 MG, DAILY
  8. LANSOPRAZOLE [Concomitant]
     Active Substance: LANSOPRAZOLE
     Indication: Peptic ulcer
     Dosage: 15 MG, DAILY
  9. SITAGLIPTIN [Concomitant]
     Active Substance: SITAGLIPTIN
     Indication: Diabetes mellitus
     Dosage: 50 MG, DAILY
  10. OLMESARTAN OD DSEP [Concomitant]
     Indication: Hypertension
     Dosage: 20 MG, DAILY
  11. PRANLUKAST TOWA [Concomitant]
     Indication: Asthma
     Dosage: 450 MG, DAILY
  12. THEO-DUR [Concomitant]
     Active Substance: THEOPHYLLINE ANHYDROUS
     Indication: Asthma
     Dosage: 400 MG, DAILY
  13. SYMBICORT [Concomitant]
     Active Substance: BUDESONIDE\FORMOTEROL FUMARATE DIHYDRATE
     Indication: Asthma
     Dosage: 2 DF, 2X/DAY (2 PUFFS PER DOSE, TWICE DAILY)

REACTIONS (2)
  - Pulmonary toxicity [Recovered/Resolved]
  - White blood cell count decreased [Recovered/Resolved]

NARRATIVE: CASE EVENT DATE: 20250425
